FAERS Safety Report 23798450 (Version 1)
Quarter: 2024Q2

REPORT INFORMATION
  Report Type: Spontaneous
  Country: AT (occurrence: AT)
  Receive Date: 20240430
  Receipt Date: 20240430
  Transmission Date: 20240716
  Serious: Yes (Hospitalization)
  Sender: FDA-Public Use
  Company Number: AT-PFM-2024-02608

PATIENT
  Age: 49 Year
  Sex: Male

DRUGS (2)
  1. MEKTOVI [Suspect]
     Active Substance: BINIMETINIB
     Indication: Metastatic malignant melanoma
     Dosage: 45 MG, BID (2/DAY), 3-0-3
     Route: 048
     Dates: start: 20240408
  2. RIBOCICLIB [Concomitant]
     Active Substance: RIBOCICLIB
     Indication: Metastatic malignant melanoma
     Dosage: 200 MG, QD (1/DAY), (1-0-0)
     Route: 065
     Dates: start: 20240408

REACTIONS (3)
  - Anaemia [Unknown]
  - Off label use [Unknown]
  - Product use issue [Unknown]

NARRATIVE: CASE EVENT DATE: 20240408
